FAERS Safety Report 14577002 (Version 2)
Quarter: 2018Q2

REPORT INFORMATION
  Report Type: Spontaneous
  Country: FR (occurrence: FR)
  Receive Date: 20180227
  Receipt Date: 20180613
  Transmission Date: 20180711
  Serious: Yes (Hospitalization, Other)
  Sender: FDA-Public Use
  Company Number: PHHY2017FR201243

PATIENT
  Age: 57 Year
  Sex: Female

DRUGS (2)
  1. TACROLIMUS. [Suspect]
     Active Substance: TACROLIMUS
     Indication: STEM CELL TRANSPLANT
     Dosage: UNK
     Route: 065
     Dates: start: 20160705
  2. TACROLIMUS. [Suspect]
     Active Substance: TACROLIMUS
     Dosage: UNK
     Route: 065
     Dates: start: 20160831

REACTIONS (13)
  - Abdominal pain [Unknown]
  - Off label use [Unknown]
  - Graft versus host disease [Recovered/Resolved]
  - General physical health deterioration [Unknown]
  - Diarrhoea [Unknown]
  - Crepitations [Unknown]
  - Dyspnoea exertional [Unknown]
  - Weight increased [Unknown]
  - Graft versus host disease in gastrointestinal tract [Unknown]
  - Oedema peripheral [Unknown]
  - Chronic graft versus host disease in skin [Recovering/Resolving]
  - Nephrotic syndrome [Recovered/Resolved]
  - Chronic graft versus host disease [Recovered/Resolved]
